FAERS Safety Report 11682195 (Version 1)
Quarter: 2015Q4

REPORT INFORMATION
  Report Type: Report from Study
  Country: US (occurrence: US)
  Receive Date: 20151029
  Receipt Date: 20151029
  Transmission Date: 20160304
  Serious: Yes (Hospitalization)
  Sender: FDA-Public Use
  Company Number: US-BIOGENIDEC-2015BI144785

PATIENT
  Sex: Female

DRUGS (7)
  1. XANAX XR [Concomitant]
     Active Substance: ALPRAZOLAM
  2. MOTRIN [Concomitant]
     Active Substance: IBUPROFEN
  3. VALTREX [Concomitant]
     Active Substance: VALACYCLOVIR HYDROCHLORIDE
  4. PHENTERMIN HCL [Concomitant]
  5. TRAZODONE [Concomitant]
     Active Substance: TRAZODONE HYDROCHLORIDE
  6. AMBIEN [Concomitant]
     Active Substance: ZOLPIDEM TARTRATE
  7. TECFIDERA [Suspect]
     Active Substance: DIMETHYL FUMARATE
     Indication: MULTIPLE SCLEROSIS
     Route: 048
     Dates: start: 201402

REACTIONS (1)
  - Hysterectomy [Unknown]
